FAERS Safety Report 10082559 (Version 1)
Quarter: 2014Q2

REPORT INFORMATION
  Report Type: Spontaneous
  Country: US (occurrence: US)
  Receive Date: 20140416
  Receipt Date: 20140416
  Transmission Date: 20141212
  Serious: No
  Sender: FDA-Public Use
  Company Number: US-MALLINCKRODT-T201302047

PATIENT
  Sex: Male
  Weight: 79.37 kg

DRUGS (1)
  1. METHYLIN ER [Suspect]
     Indication: DISTURBANCE IN ATTENTION
     Dosage: 10 MG, QD AM
     Route: 048

REACTIONS (2)
  - Somnolence [Unknown]
  - Mood altered [Unknown]
